FAERS Safety Report 7965578-X (Version None)
Quarter: 2011Q4

REPORT INFORMATION
  Report Type: 
  Country: None (occurrence: None)
  Receive Date: 20111208
  Receipt Date: 20111205
  Transmission Date: 20120403
  Serious: Yes (Hospitalization)
  Sender: FDA-Public Use
  Company Number: US-TEVA-312303USA

PATIENT
  Sex: Male

DRUGS (1)
  1. PROPOXYPHENE NAPSYLATE W/ ACETAMINOPHEN [Suspect]
     Indication: WISDOM TEETH REMOVAL
     Route: 048

REACTIONS (7)
  - ANXIETY [None]
  - MUSCLE SPASMS [None]
  - DYSPNOEA [None]
  - PALPITATIONS [None]
  - HEART RATE INCREASED [None]
  - HYPOAESTHESIA [None]
  - HYPERVENTILATION [None]
